FAERS Safety Report 4964901-8 (Version None)
Quarter: 2006Q2

REPORT INFORMATION
  Report Type: 
  Country: None (occurrence: None)
  Receive Date: 20060406
  Receipt Date: 20060328
  Transmission Date: 20061013
  Serious: Yes (Other)
  Sender: FDA-Public Use
  Company Number: US-JNJFOC-20060303311

PATIENT
  Sex: Female

DRUGS (23)
  1. ULTRAM [Suspect]
     Indication: ARTHROPATHY
     Route: 048
  2. PRILOSEC [Concomitant]
  3. ALLEGRA [Concomitant]
  4. PROVENTIL [Concomitant]
  5. NASONEX [Concomitant]
  6. EXTRA STRENGTH TYLENOL [Concomitant]
  7. SINGULAIR [Concomitant]
  8. ADVAIR DISKUS 100/50 [Concomitant]
  9. ADVAIR DISKUS 100/50 [Concomitant]
  10. LIDEX CREAM [Concomitant]
  11. LAC-HYDRIN [Concomitant]
  12. MOTILIUM [Concomitant]
  13. COMBIVENT [Concomitant]
  14. COMBIVENT [Concomitant]
  15. ELIDEL [Concomitant]
  16. LIDODERM [Concomitant]
  17. WELLBUTRIN [Concomitant]
  18. CYMBALTA [Concomitant]
  19. GLUCOSAMINE [Concomitant]
  20. LOVASTATIN [Concomitant]
  21. HYDROCHLOROTHIAZIDE [Concomitant]
  22. ACTIVELLA [Concomitant]
  23. ACTIVELLA [Concomitant]

REACTIONS (1)
  - ELECTROCARDIOGRAM QT CORRECTED INTERVAL PROLONGED [None]
